FAERS Safety Report 4710729-3 (Version None)
Quarter: 2005Q3

REPORT INFORMATION
  Report Type: 
  Country: None (occurrence: None)
  Receive Date: 20050711
  Receipt Date: 20050706
  Transmission Date: 20060218
  Serious: Yes (Other)
  Sender: FDA-Public Use
  Company Number: US-GLAXOSMITHKLINE-A0565157A

PATIENT
  Age: 68 Year
  Sex: Male
  Weight: 106.8 kg

DRUGS (9)
  1. DEBROX DROPS [Suspect]
     Indication: CERUMEN IMPACTION
     Route: 001
     Dates: start: 20050705, end: 20050705
  2. NORVASC [Concomitant]
     Indication: BLOOD PRESSURE
     Route: 048
  3. LIPITOR [Concomitant]
     Route: 048
  4. ATENOLOL [Concomitant]
     Route: 048
  5. LISINOPRIL [Concomitant]
     Route: 048
  6. FOLIC ACID [Concomitant]
     Route: 048
  7. HYDROCHLOROTHIAZIDE [Concomitant]
     Route: 048
  8. ASPIRIN [Concomitant]
     Route: 048
  9. TYLENOL [Concomitant]
     Indication: PAIN
     Route: 048

REACTIONS (1)
  - EAR HAEMORRHAGE [None]
